FAERS Safety Report 7414453-8 (Version None)
Quarter: 2011Q2

REPORT INFORMATION
  Report Type: 
  Country: None (occurrence: None)
  Receive Date: 20110414
  Receipt Date: 20110331
  Transmission Date: 20111010
  Serious: Yes (Death, Congenital Anomaly, Other)
  Sender: FDA-Public Use
  Company Number: US-JNJFOC-M-720002

PATIENT
  Age: 1 Day
  Sex: Male
  Weight: 1.1 kg

DRUGS (9)
  1. DECONGESTANTS NOS [Suspect]
     Indication: DRUG EXPOSURE DURING PREGNANCY
     Route: 064
  2. RITALIN [Suspect]
     Indication: DRUG EXPOSURE DURING PREGNANCY
     Route: 064
  3. DILANTIN [Suspect]
     Indication: DRUG EXPOSURE DURING PREGNANCY
     Route: 064
  4. MEPERIDINE [Concomitant]
     Indication: DRUG EXPOSURE DURING PREGNANCY
     Route: 064
  5. TETRACYCLINE [Suspect]
     Indication: DRUG EXPOSURE DURING PREGNANCY
     Route: 064
  6. HALOTHANE [Concomitant]
     Indication: DRUG EXPOSURE DURING PREGNANCY
     Route: 064
  7. PHENYTOIN [Concomitant]
     Indication: DRUG EXPOSURE DURING PREGNANCY
     Route: 064
  8. ATROPINE [Concomitant]
     Indication: DRUG EXPOSURE DURING PREGNANCY
     Route: 064
  9. HALDOL [Suspect]
     Indication: DRUG EXPOSURE DURING PREGNANCY
     Route: 064
     Dates: start: 19711110

REACTIONS (8)
  - SUBDURAL HAEMORRHAGE [None]
  - APGAR SCORE LOW [None]
  - ASPHYXIA [None]
  - AORTIC VALVE DISEASE [None]
  - LIMB DEFORMITY [None]
  - SYNDACTYLY [None]
  - PREMATURE BABY [None]
  - DURAL TEAR [None]
